FAERS Safety Report 20055456 (Version 2)
Quarter: 2021Q4

REPORT INFORMATION
  Report Type: Spontaneous
  Country: RU (occurrence: RU)
  Receive Date: 20211110
  Receipt Date: 20211130
  Transmission Date: 20220303
  Serious: Yes (Hospitalization, Other)
  Sender: FDA-Public Use
  Company Number: RU-GILEAD-2021-0555765

PATIENT
  Age: 43 Year
  Sex: Male
  Weight: 89 kg

DRUGS (1)
  1. TENOFOVIR ALAFENAMIDE [Suspect]
     Active Substance: TENOFOVIR ALAFENAMIDE
     Indication: Hepatitis B
     Dosage: 25 MG, QD
     Route: 065
     Dates: start: 202107

REACTIONS (3)
  - Therapy non-responder [Unknown]
  - Alanine aminotransferase increased [Unknown]
  - Gastritis erosive [Unknown]
